FAERS Safety Report 8419151-X (Version None)
Quarter: 2012Q2

REPORT INFORMATION
  Report Type: 
  Country: None (occurrence: None)
  Receive Date: 20120607
  Receipt Date: 20120522
  Transmission Date: 20120825
  Serious: No
  Sender: FDA-Public Use
  Company Number: US-BAYER-2012-051571

PATIENT
  Age: 72 Year
  Sex: Male
  Weight: 59 kg

DRUGS (2)
  1. DOMEBORO [Suspect]
     Indication: RADIATION SKIN INJURY
     Dosage: 1, AS NEEDED
     Route: 061
     Dates: start: 20120501
  2. ANTIHYPERTENSIVES [Concomitant]

REACTIONS (1)
  - THERAPEUTIC RESPONSE UNEXPECTED [None]
